FAERS Safety Report 5869871-6 (Version None)
Quarter: 2008Q3

REPORT INFORMATION
  Report Type: 
  Country: None (occurrence: None)
  Receive Date: 20080902
  Receipt Date: 20080815
  Transmission Date: 20090109
  Serious: Yes (Other)
  Sender: FDA-Public Use
  Company Number: CIP08001588

PATIENT
  Sex: Male

DRUGS (3)
  1. ASACOL [Suspect]
     Indication: COLITIS ULCERATIVE
     Dosage: 2400 MG DAILY, ORAL
     Route: 048
     Dates: start: 19980101, end: 20080801
  2. HYDROCHLOROTHIAZIDE (HYDROCHLOROTIAZIDE) [Concomitant]
  3. PREVACID [Concomitant]

REACTIONS (4)
  - BLOOD CREATINE PHOSPHOKINASE INCREASED [None]
  - FATIGUE [None]
  - MITOCHONDRIAL MYOPATHY ACQUIRED [None]
  - MUSCLE ATROPHY [None]
